FAERS Safety Report 4394922-8 (Version None)
Quarter: 2004Q3

REPORT INFORMATION
  Report Type: 
  Country: None (occurrence: None)
  Receive Date: 20040712
  Receipt Date: 20040324
  Transmission Date: 20050211
  Serious: Yes (Hospitalization)
  Sender: FDA-Public Use
  Company Number: FR-GLAXOSMITHKLINE-B0328557A

PATIENT
  Age: 58 Year
  Sex: Female

DRUGS (3)
  1. REQUIP [Suspect]
     Indication: PARKINSON'S DISEASE
     Route: 048
     Dates: start: 19980101
  2. SINEMET [Concomitant]
     Indication: PARKINSON'S DISEASE
  3. MODOPAR [Concomitant]
     Indication: PARKINSON'S DISEASE
     Dosage: 900MG PER DAY
     Route: 048

REACTIONS (6)
  - AGITATION [None]
  - DELUSION [None]
  - DELUSIONAL DISORDER, PERSECUTORY TYPE [None]
  - HALLUCINATION, AUDITORY [None]
  - HALLUCINATION, VISUAL [None]
  - PARANOIA [None]
